FAERS Safety Report 10208135 (Version 1)
Quarter: 2014Q2

REPORT INFORMATION
  Report Type: Spontaneous
  Country: US (occurrence: None)
  Receive Date: 20140527
  Receipt Date: 20140527
  Transmission Date: 20141212
  Serious: No
  Sender: FDA-Public Use
  Company Number: None

PATIENT
  Age: 53 Year
  Sex: Male

DRUGS (1)
  1. DEPO-TESTOSTERONE CYPIONATE [Suspect]
     Dates: start: 2009, end: 20120920

REACTIONS (8)
  - Jaundice [None]
  - Decreased appetite [None]
  - Pruritus [None]
  - Fatigue [None]
  - Cholelithiasis [None]
  - Gallbladder disorder [None]
  - Cholelithiasis [None]
  - Cholecystitis [None]
